FAERS Safety Report 11296682 (Version 1)
Quarter: 2015Q3

REPORT INFORMATION
  Report Type: Spontaneous
  Country: US (occurrence: US)
  Receive Date: 20150722
  Receipt Date: 20150722
  Transmission Date: 20151125
  Serious: No
  Sender: FDA-Public Use
  Company Number: US-ELI_LILLY_AND_COMPANY-US201006003836

PATIENT
  Age: 72 Year
  Sex: Female

DRUGS (5)
  1. NIACIN. [Concomitant]
     Active Substance: NIACIN
  2. PLAVIX [Concomitant]
     Active Substance: CLOPIDOGREL BISULFATE
  3. EFFIENT [Suspect]
     Active Substance: PRASUGREL HYDROCHLORIDE
     Dosage: 10 MG, UNKNOWN
  4. COREG [Concomitant]
     Active Substance: CARVEDILOL
  5. METOPROLOL [Concomitant]
     Active Substance: METOPROLOL

REACTIONS (3)
  - Fatigue [Unknown]
  - Hot flush [Unknown]
  - Nausea [Unknown]
